FAERS Safety Report 12832726 (Version 4)
Quarter: 2016Q4

REPORT INFORMATION
  Report Type: Spontaneous
  Country: US (occurrence: US)
  Receive Date: 20161010
  Receipt Date: 20161207
  Transmission Date: 20170207
  Serious: Yes (Other)
  Sender: FDA-Public Use
  Company Number: US-GLAXOSMITHKLINE-US2016145694

PATIENT
  Age: 65 Year
  Sex: Female

DRUGS (3)
  1. ADVAIR HFA [Suspect]
     Active Substance: FLUTICASONE PROPIONATE\SALMETEROL XINAFOATE
     Indication: ASTHMA
  2. VENTOLIN [Concomitant]
     Active Substance: ALBUTEROL SULFATE
  3. ADVAIR HFA [Suspect]
     Active Substance: FLUTICASONE PROPIONATE\SALMETEROL XINAFOATE
     Indication: CHRONIC OBSTRUCTIVE PULMONARY DISEASE
     Dosage: 1 PUFF(S), BID
     Route: 055
     Dates: start: 2010

REACTIONS (5)
  - Lung infection [Unknown]
  - Lung disorder [Unknown]
  - Throat irritation [Recovering/Resolving]
  - Condition aggravated [Unknown]
  - Product quality issue [Unknown]

NARRATIVE: CASE EVENT DATE: 20160920
